FAERS Safety Report 4559198-7 (Version None)
Quarter: 2005Q1

REPORT INFORMATION
  Report Type: 
  Country: None (occurrence: None)
  Receive Date: 20050124
  Receipt Date: 20050111
  Transmission Date: 20050727
  Serious: Yes (Disabling, Other)
  Sender: FDA-Public Use
  Company Number: GB-JNJFOC-20041006137

PATIENT
  Sex: Male
  Weight: 82.55 kg

DRUGS (2)
  1. RISPERDAL [Suspect]
     Indication: OBSESSIVE-COMPULSIVE DISORDER
     Route: 049
  2. RISPERDAL [Suspect]
     Route: 049

REACTIONS (4)
  - DELUSION [None]
  - DEPRESSION [None]
  - HEART RATE IRREGULAR [None]
  - SELF-INJURIOUS IDEATION [None]
